FAERS Safety Report 24350668 (Version 1)
Quarter: 2024Q3

REPORT INFORMATION
  Report Type: Spontaneous
  Country: US (occurrence: None)
  Receive Date: 20240920
  Receipt Date: 20240920
  Transmission Date: 20241016
  Serious: No
  Sender: Public
  Company Number: None

PATIENT
  Age: 87 Year
  Sex: Female

DRUGS (1)
  1. JAKAFI [Suspect]
     Active Substance: RUXOLITINIB
     Indication: Myelofibrosis
     Dosage: 5 MG TWICE A DAY ORAL ?
     Route: 048
     Dates: start: 20210419

REACTIONS (2)
  - Ear discomfort [None]
  - Hypoacusis [None]

NARRATIVE: CASE EVENT DATE: 20240920
